FAERS Safety Report 16541096 (Version 1)
Quarter: 2019Q3

REPORT INFORMATION
  Report Type: Spontaneous
  Country: GB (occurrence: GB)
  Receive Date: 20190708
  Receipt Date: 20190708
  Transmission Date: 20191004
  Serious: Yes (Hospitalization, Other)
  Sender: FDA-Public Use
  Company Number: GB-TEVA-2019-GB-1074107

PATIENT
  Age: 67 Year
  Sex: Male
  Weight: 81 kg

DRUGS (11)
  1. LANTUS [Concomitant]
     Active Substance: INSULIN GLARGINE
     Dosage: USE AS DIRECTED
     Dates: start: 20180822
  2. OTOMIZE [Concomitant]
     Active Substance: DEXAMETHASONE\NEOMYCIN SULFATE
     Dosage: TO AFFECTED EAR
     Dates: start: 20190531, end: 20190605
  3. CETIRIZINE [Concomitant]
     Active Substance: CETIRIZINE HYDROCHLORIDE
     Dates: start: 20180822
  4. ZAPAIN [Concomitant]
     Active Substance: ACETAMINOPHEN\CODEINE PHOSPHATE
     Dosage: TAKE 1-2 FOUR TIMES A DAY.
     Dates: start: 20180822
  5. MOMETASONE [Concomitant]
     Active Substance: MOMETASONE
     Dosage: TWO SPRAYS DAILY IN EACH NOSTRIL
     Route: 045
     Dates: start: 20180822
  6. NYSTAN [Concomitant]
     Active Substance: NYSTATIN
     Dates: start: 20190416, end: 20190423
  7. AMOXICILLIN. [Suspect]
     Active Substance: AMOXICILLIN
     Dates: start: 20190610
  8. SIMVASTATIN. [Concomitant]
     Active Substance: SIMVASTATIN
     Dates: start: 20180822
  9. GLUCOSE [Concomitant]
     Active Substance: DEXTROSE
     Dosage: AS DIRECTED.
     Dates: start: 20180822
  10. SERETIDE [Concomitant]
     Active Substance: FLUTICASONE PROPIONATE\SALMETEROL XINAFOATE
     Route: 055
     Dates: start: 20180822
  11. HUMALOG [Concomitant]
     Active Substance: INSULIN LISPRO
     Dosage: USE AS DIRECTED
     Dates: start: 20180822

REACTIONS (4)
  - Lip swelling [Recovered/Resolved]
  - Peripheral swelling [Unknown]
  - Swollen tongue [Unknown]
  - Chest discomfort [Unknown]

NARRATIVE: CASE EVENT DATE: 20190611
